FAERS Safety Report 6319177-6 (Version None)
Quarter: 2009Q3

REPORT INFORMATION
  Report Type: 
  Country: None (occurrence: None)
  Receive Date: 20090821
  Receipt Date: 20080813
  Transmission Date: 20100115
  Serious: No
  Sender: FDA-Public Use
  Company Number: US-ABBOTT-08P-163-0470264-00

PATIENT
  Sex: Male

DRUGS (8)
  1. NIASPAN [Suspect]
     Indication: HIGH DENSITY LIPOPROTEIN DECREASED
     Dosage: AT BEDTIME
     Route: 048
     Dates: start: 20080808
  2. NIASPAN [Suspect]
     Indication: BLOOD TRIGLYCERIDES INCREASED
  3. LISINOPRIL [Concomitant]
     Indication: DRUG USE FOR UNKNOWN INDICATION
     Route: 048
  4. ADVIL GEL CAPS (IBUPROFEN) [Concomitant]
     Indication: FLUSHING
     Route: 048
  5. ADVIL GEL CAPS (IBUPROFEN) [Concomitant]
     Indication: PROPHYLAXIS
  6. MULTI-VITAMIN [Concomitant]
     Indication: VITAMIN SUPPLEMENTATION
     Route: 048
  7. COLCHICINE [Concomitant]
     Indication: ARTHROPATHY
     Route: 048
  8. INHALERS [Concomitant]
     Indication: ASTHMA
     Route: 055

REACTIONS (4)
  - BURNING SENSATION [None]
  - FLUSHING [None]
  - HYPERAESTHESIA [None]
  - MEDICATION RESIDUE [None]
